FAERS Safety Report 11835664 (Version 1)
Quarter: 2015Q4

REPORT INFORMATION
  Report Type: Report from Study
  Country: CA (occurrence: CA)
  Receive Date: 20151215
  Receipt Date: 20151215
  Transmission Date: 20160305
  Serious: Yes (Other)
  Sender: FDA-Public Use
  Company Number: CA-BEH-2015056609

PATIENT
  Age: 53 Year
  Sex: Female
  Weight: 44 kg

DRUGS (2)
  1. HIZENTRA [Suspect]
     Active Substance: HUMAN IMMUNOGLOBULIN G
     Indication: PRIMARY IMMUNODEFICIENCY SYNDROME
     Dosage: (4 TIMES PER WEEK 2G/10ML VIALS), TOTAL 8 GRAMS WEEKLY. PUSH METHOD
     Route: 058
     Dates: start: 20151204
  2. HIZENTRA [Suspect]
     Active Substance: HUMAN IMMUNOGLOBULIN G
     Dosage: (4 TIMES PER WEEK 2G/10ML VIALS), TOTAL 8 GRAMS WEEKLY. PUSH METHOD
     Route: 058
     Dates: start: 20140217

REACTIONS (4)
  - Headache [Recovering/Resolving]
  - Vitreous floaters [Recovering/Resolving]
  - Vitreous floaters [Recovering/Resolving]
  - Headache [Recovering/Resolving]

NARRATIVE: CASE EVENT DATE: 201511
